FAERS Safety Report 14113187 (Version 1)
Quarter: 2017Q4

REPORT INFORMATION
  Report Type: Spontaneous
  Country: US (occurrence: None)
  Receive Date: 20171021
  Receipt Date: 20171021
  Transmission Date: 20180321
  Serious: Yes (Hospitalization)
  Sender: FDA-Public Use
  Company Number: None

PATIENT
  Age: 37 Year
  Sex: Male
  Weight: 107.8 kg

DRUGS (4)
  1. 5-FLUOROURACIL (5-FU) [Suspect]
     Active Substance: FLUOROURACIL
     Dates: end: 20170927
  2. ELOXATIN [Suspect]
     Active Substance: OXALIPLATIN
     Dates: end: 20170927
  3. CAMPTOSAR [Suspect]
     Active Substance: IRINOTECAN HYDROCHLORIDE
     Dates: end: 20170927
  4. LEUCOVORIN CALCIUM. [Suspect]
     Active Substance: LEUCOVORIN CALCIUM
     Dates: end: 20170927

REACTIONS (6)
  - Blood culture positive [None]
  - Dysstasia [None]
  - Tachycardia [None]
  - Sepsis [None]
  - Klebsiella test positive [None]
  - Asthenia [None]

NARRATIVE: CASE EVENT DATE: 20171004
